FAERS Safety Report 9470450 (Version 1)
Quarter: 2013Q3

REPORT INFORMATION
  Report Type: Spontaneous
  Country: US (occurrence: None)
  Receive Date: 20130820
  Receipt Date: 20130820
  Transmission Date: 20140515
  Serious: Yes (Other)
  Sender: FDA-Public Use
  Company Number: None

PATIENT
  Age: 34 Year
  Sex: Female
  Weight: 65.77 kg

DRUGS (1)
  1. CIPROFLOXACIN [Suspect]
     Indication: EAR INFECTION
     Dosage: 1?TWICE DAILY?TAKEN BY MOUTH?3 PILLS
     Route: 048

REACTIONS (3)
  - Pain in extremity [None]
  - Abasia [None]
  - Arthralgia [None]
